FAERS Safety Report 9723274 (Version 3)
Quarter: 2013Q4

REPORT INFORMATION
  Report Type: Spontaneous
  Country: JP (occurrence: JP)
  Receive Date: 20131202
  Receipt Date: 20131226
  Transmission Date: 20140711
  Serious: Yes (Other)
  Sender: FDA-Public Use
  Company Number: JP-PFIZER INC-2013288095

PATIENT
  Age: 36 Year
  Sex: Female

DRUGS (1)
  1. JZOLOFT [Suspect]
     Dosage: 25 MG, DAILY
     Route: 048
     Dates: start: 20131005, end: 20131005

REACTIONS (3)
  - Anxiety [Recovered/Resolved]
  - Irritability [Recovered/Resolved]
  - Panic attack [Recovered/Resolved]
